FAERS Safety Report 14551247 (Version 2)
Quarter: 2018Q2

REPORT INFORMATION
  Report Type: Spontaneous
  Country: CH (occurrence: CH)
  Receive Date: 20180220
  Receipt Date: 20180528
  Transmission Date: 20180711
  Serious: Yes (Hospitalization, Other)
  Sender: FDA-Public Use
  Company Number: CH-ROCHE-1953909

PATIENT
  Age: 79 Year
  Sex: Female
  Weight: 40 kg

DRUGS (25)
  1. NORVASC [Concomitant]
     Active Substance: AMLODIPINE BESYLATE
     Route: 048
  2. DUROGESIC [Concomitant]
     Active Substance: FENTANYL
     Route: 061
  3. COSOPT S [Concomitant]
     Route: 047
  4. BACTRIM [Concomitant]
     Active Substance: SULFAMETHOXAZOLE\TRIMETHOPRIM
     Route: 048
  5. DUROGESIC [Concomitant]
     Active Substance: FENTANYL
     Route: 061
  6. BEPANTHEN (SWITZERLAND) [Concomitant]
     Route: 047
  7. CHLORHEXIDIN [Concomitant]
     Active Substance: CHLORHEXIDINE
     Route: 048
  8. TOREM [Concomitant]
     Active Substance: TORSEMIDE
     Route: 048
  9. ASPIRIN CARDIO [Concomitant]
     Active Substance: ASPIRIN
     Route: 048
  10. REMERON [Concomitant]
     Active Substance: MIRTAZAPINE
     Route: 048
  11. VALTREX [Concomitant]
     Active Substance: VALACYCLOVIR HYDROCHLORIDE
     Route: 048
  12. DEXAFREE [Concomitant]
     Active Substance: DEXAMETHASONE SODIUM PHOSPHATE
     Route: 047
  13. LAXOBERON [Concomitant]
     Active Substance: SODIUM PICOSULFATE
     Route: 048
  14. PREDNISON [Suspect]
     Active Substance: PREDNISONE
     Route: 048
     Dates: start: 201408, end: 2016
  15. PREDNISON [Suspect]
     Active Substance: PREDNISONE
     Route: 048
     Dates: start: 2016
  16. NOVALGIN (SWITZERLAND) [Concomitant]
     Active Substance: DIPYRONE
     Route: 048
  17. DEXAFREE [Concomitant]
     Active Substance: DEXAMETHASONE SODIUM PHOSPHATE
     Route: 047
  18. PREDNISON [Suspect]
     Active Substance: PREDNISONE
     Indication: PRODUCT USED FOR UNKNOWN INDICATION
     Route: 048
  19. PANTOZOL (SWITZERLAND) [Concomitant]
     Active Substance: PANTOPRAZOLE SODIUM
     Route: 048
  20. BEPANTHEN (SWITZERLAND) [Concomitant]
     Route: 047
  21. FLECTORTISSUGELEP [Concomitant]
     Active Substance: DICLOFENAC EPOLAMINE
     Route: 061
  22. OXYNORM [Concomitant]
     Active Substance: OXYCODONE HYDROCHLORIDE
     Route: 048
  23. ACTEMRA [Suspect]
     Active Substance: TOCILIZUMAB
     Indication: TEMPORAL ARTERITIS
     Route: 041
     Dates: start: 20150112
  24. CELLCEPT [Suspect]
     Active Substance: MYCOPHENOLATE MOFETIL\MYCOPHENOLATE MOFETIL HYDROCHLORIDE
     Indication: PRODUCT USED FOR UNKNOWN INDICATION
     Route: 048
  25. MAGNESIOCARD [Concomitant]
     Active Substance: MAGNESIUM ASPARTATE HYDROCHLORIDE
     Route: 048

REACTIONS (4)
  - Ulcerative keratitis [Unknown]
  - Urinary tract infection bacterial [Not Recovered/Not Resolved]
  - Ophthalmic herpes simplex [Unknown]
  - Osteoporotic fracture [Unknown]

NARRATIVE: CASE EVENT DATE: 20160718
